FAERS Safety Report 5090639-5 (Version None)
Quarter: 2006Q3

REPORT INFORMATION
  Report Type: 
  Country: None (occurrence: None)
  Receive Date: 20060823
  Receipt Date: 20060818
  Transmission Date: 20061208
  Serious: Yes (Life-Threatening)
  Sender: FDA-Public Use
  Company Number: AE 060802.ACA

PATIENT
  Age: 47 Year
  Sex: Female
  Weight: 68 kg

DRUGS (6)
  1. AMINOCAPROIC ACID [Suspect]
     Indication: POST PROCEDURAL HAEMORRHAGE
     Dosage: 5 G THEN 1 G PER HOUR
  2. AMINOCAPROIC ACID [Suspect]
     Indication: PROPHYLAXIS
     Dosage: 5 G THEN 1 G PER HOUR
  3. MIDAZOLAM HCL [Concomitant]
  4. FENTANYL [Concomitant]
  5. NIMBEX [Concomitant]
  6. ISOFLURANE [Concomitant]

REACTIONS (13)
  - BLOOD PRESSURE DECREASED [None]
  - CARDIAC ARREST [None]
  - CENTRAL VENOUS PRESSURE DECREASED [None]
  - DIALYSIS [None]
  - DILATATION VENTRICULAR [None]
  - HEART RATE INCREASED [None]
  - INTRACARDIAC THROMBUS [None]
  - PULMONARY ARTERY THROMBOSIS [None]
  - RENAL FAILURE ACUTE [None]
  - RESPIRATORY FAILURE [None]
  - VENA CAVA THROMBOSIS [None]
  - VENTRICULAR FIBRILLATION [None]
  - VENTRICULAR HYPOKINESIA [None]
